FAERS Safety Report 5133121-9 (Version None)
Quarter: 2006Q4

REPORT INFORMATION
  Report Type: 
  Country: None (occurrence: None)
  Receive Date: 20061017
  Receipt Date: 20061004
  Transmission Date: 20070319
  Serious: Yes (Other)
  Sender: FDA-Public Use
  Company Number: 2006122848

PATIENT

DRUGS (3)
  1. SOLU-MEDROL [Suspect]
     Dosage: 7.5 MG
  2. IMURAN [Concomitant]
  3. BREDININ (MIZORIBINE) [Concomitant]

REACTIONS (4)
  - BONE DENSITY DECREASED [None]
  - DYSSTASIA [None]
  - FRACTURE NONUNION [None]
  - LUMBAR VERTEBRAL FRACTURE [None]
